FAERS Safety Report 21390023 (Version 1)
Quarter: 2022Q3

REPORT INFORMATION
  Report Type: Report from Study
  Country: US (occurrence: US)
  Receive Date: 20220929
  Receipt Date: 20220929
  Transmission Date: 20221027
  Serious: Yes (Hospitalization, Other)
  Sender: FDA-Public Use
  Company Number: US-GILEAD-2022-0599377

PATIENT
  Sex: Male

DRUGS (23)
  1. AZTREONAM LYSINE [Suspect]
     Active Substance: AZTREONAM LYSINE
     Indication: Product used for unknown indication
     Dosage: 75 MG, CYCLING 14 DAYS ON AND 14 DAYS OFF FOR 3 MONTHS
     Route: 055
     Dates: start: 202011
  2. SIROLIMUS [Concomitant]
     Active Substance: SIROLIMUS
  3. GABAPENTIN [Concomitant]
     Active Substance: GABAPENTIN
  4. PFIZER-BIONTECH COVID-19 VACCINE [Concomitant]
     Active Substance: TOZINAMERAN
  5. MAGNESIUM [Concomitant]
     Active Substance: MAGNESIUM
  6. COREG [Concomitant]
     Active Substance: CARVEDILOL
  7. RAPAMUNE [Concomitant]
     Active Substance: SIROLIMUS
  8. PRAVASTATIN SODIUM [Concomitant]
     Active Substance: PRAVASTATIN SODIUM
  9. MEPRON [Concomitant]
     Active Substance: ATOVAQUONE
  10. ASPIRINA FORTE [ACETYLSALICYLIC ACID] [Concomitant]
  11. PANTOPRAZOLE [Concomitant]
     Active Substance: PANTOPRAZOLE
  12. LISINOPRIL [Concomitant]
     Active Substance: LISINOPRIL
  13. ATROVENT [Concomitant]
     Active Substance: IPRATROPIUM BROMIDE
  14. IRON [Concomitant]
     Active Substance: IRON
  15. AZITHROMYCIN [Concomitant]
     Active Substance: AZITHROMYCIN
  16. LASIX [Concomitant]
     Active Substance: FUROSEMIDE
  17. TOLSURA [Concomitant]
     Active Substance: ITRACONAZOLE
  18. VITAMINS NOS [Concomitant]
     Active Substance: VITAMINS
  19. FISH OIL [Concomitant]
     Active Substance: FISH OIL
  20. VIT D [VITAMIN D NOS] [Concomitant]
  21. PREDNISONE [Concomitant]
     Active Substance: PREDNISONE
  22. SERTRALINE HYDROCHLORIDE [Concomitant]
     Active Substance: SERTRALINE HYDROCHLORIDE
  23. POTASSIUM CITRATE [Concomitant]
     Active Substance: POTASSIUM CITRATE

REACTIONS (2)
  - Renal injury [Unknown]
  - Off label use [Not Recovered/Not Resolved]
